FAERS Safety Report 10151857 (Version 1)
Quarter: 2014Q2

REPORT INFORMATION
  Report Type: Report from Study
  Country: US (occurrence: None)
  Receive Date: 20140501
  Receipt Date: 20140501
  Transmission Date: 20141212
  Serious: Yes (Other)
  Sender: FDA-Public Use
  Company Number: HA14-142-AE

PATIENT
  Age: 61 Year
  Sex: Female
  Weight: 59.5 kg

DRUGS (13)
  1. NAPROXEN [Suspect]
     Indication: OSTEOARTHRITIS
     Dosage: 1 TABLET
     Route: 048
     Dates: start: 20071220, end: 20080130
  2. NAPROXEN [Suspect]
     Indication: RHEUMATOID ARTHRITIS
     Dosage: 1 TABLET
     Route: 048
     Dates: start: 20071220, end: 20080130
  3. CELECOXIB; IBUPROFEN; PLACEBO [Suspect]
     Indication: OSTEOARTHRITIS
     Dosage: 1 TABLET
     Route: 048
     Dates: start: 20071220, end: 20080130
  4. CELECOXIB; IBUPROFEN; PLACEBO [Suspect]
     Indication: RHEUMATOID ARTHRITIS
     Dosage: 1 TABLET
     Route: 048
     Dates: start: 20071220, end: 20080130
  5. ESOMEPRAZOLE (NEXIUM) [Concomitant]
  6. LOSARTAN [Concomitant]
  7. HYDROCHLOROTHIAZIDE [Concomitant]
  8. METFORMIN [Concomitant]
  9. LEVOTHYROXINE SODIUM (EUTHYROX) [Concomitant]
  10. ACETYLSALICYLIC ACID (ASPIRINA) [Concomitant]
  11. AMLODIPINE [Concomitant]
  12. ATENOLOL [Concomitant]
  13. INSULIN [Concomitant]

REACTIONS (4)
  - Hypertensive crisis [None]
  - Dyspepsia [None]
  - Chest pain [None]
  - Paraesthesia [None]
